FAERS Safety Report 5564295-3 (Version None)
Quarter: 2007Q4

REPORT INFORMATION
  Report Type: 
  Country: None (occurrence: None)
  Receive Date: 20071218
  Receipt Date: 20071210
  Transmission Date: 20080405
  Serious: Yes (Hospitalization, Other)
  Sender: FDA-Public Use
  Company Number: PHBS2007JP20113

PATIENT
  Age: 56 Year
  Sex: Male
  Weight: 54 kg

DRUGS (2)
  1. OCTREOTIDE ACETATE [Suspect]
     Indication: PANCREATIC PSEUDOCYST
     Dosage: 100 UG/DAY
     Route: 058
     Dates: start: 20000101
  2. NAFAMOSTAT MESILATE [Suspect]
     Dosage: 130 MG/D

REACTIONS (4)
  - ABDOMINAL PAIN UPPER [None]
  - BLOOD AMYLASE INCREASED [None]
  - HYPERKALAEMIA [None]
  - PANCREATITIS ACUTE [None]
